FAERS Safety Report 17992410 (Version 1)
Quarter: 2020Q3

REPORT INFORMATION
  Report Type: Report from Study
  Country: None (occurrence: FR)
  Receive Date: 20200708
  Receipt Date: 20200708
  Transmission Date: 20201103
  Serious: Yes (Hospitalization)
  Sender: FDA-Public Use
  Company Number: FR-ABBVIE-20K-056-3473573-00

PATIENT
  Sex: Male

DRUGS (3)
  1. DUODOPA [Suspect]
     Active Substance: CARBIDOPA\LEVODOPA
     Indication: PARKINSON^S DISEASE
     Route: 050
     Dates: start: 201901
  2. CLOZAPINE. [Concomitant]
     Active Substance: CLOZAPINE
     Indication: PRODUCT USED FOR UNKNOWN INDICATION
     Dates: end: 202007
  3. CLOZAPINE. [Concomitant]
     Active Substance: CLOZAPINE
     Dates: start: 202007

REACTIONS (5)
  - Agitation [Recovered/Resolved]
  - Hallucination [Unknown]
  - Intentional medical device removal by patient [Unknown]
  - Behaviour disorder [Unknown]
  - Aggression [Unknown]

NARRATIVE: CASE EVENT DATE: 2020
